FAERS Safety Report 5848450-0 (Version None)
Quarter: 2008Q3

REPORT INFORMATION
  Report Type: 
  Country: None (occurrence: None)
  Receive Date: 20080815
  Receipt Date: 20080815
  Transmission Date: 20090109
  Serious: Yes (Other)
  Sender: FDA-Public Use
  Company Number: None

PATIENT
  Age: 64 Year
  Sex: Female
  Weight: 52.1637 kg

DRUGS (1)
  1. PRILOSEC [Suspect]
     Indication: IRRITABLE BOWEL SYNDROME
     Dosage: 20 MG ONCE DAILY
     Dates: start: 20080524, end: 20080814

REACTIONS (1)
  - ALOPECIA [None]
